FAERS Safety Report 14616595 (Version 1)
Quarter: 2018Q1

REPORT INFORMATION
  Report Type: Spontaneous
  Country: US (occurrence: US)
  Receive Date: 20180309
  Receipt Date: 20180309
  Transmission Date: 20180509
  Serious: No
  Sender: FDA-Public Use
  Company Number: US-ASTRAZENECA-2018SE29647

PATIENT
  Sex: Male

DRUGS (2)
  1. GAVISCON [Concomitant]
     Active Substance: ALUMINUM HYDROXIDE\MAGNESIUM CARBONATE
  2. NEXIUM 24HR [Suspect]
     Active Substance: ESOMEPRAZOLE MAGNESIUM
     Indication: ANTACID THERAPY
     Dosage: UNK, DAILY (TAKES AT NOON, SOMETIMES HE TAKES TWO IF NEEDED)
     Route: 048

REACTIONS (3)
  - Intentional product misuse [Unknown]
  - Incorrect drug administration duration [Unknown]
  - Sleep disorder [Unknown]
